FAERS Safety Report 24799490 (Version 1)
Quarter: 2025Q1

REPORT INFORMATION
  Report Type: Spontaneous
  Country: CO (occurrence: CO)
  Receive Date: 20250102
  Receipt Date: 20250102
  Transmission Date: 20250409
  Serious: Yes (Other)
  Sender: SANDOZ
  Company Number: CO-SANDOZ-SDZ2024CO106370

PATIENT
  Sex: Male
  Weight: 62 kg

DRUGS (2)
  1. MONTELUKAST [Suspect]
     Active Substance: MONTELUKAST
     Indication: Asthma
     Route: 065
  2. XOLAIR [Suspect]
     Active Substance: OMALIZUMAB
     Indication: Asthma
     Dosage: 300 MG; ONCE A MONTH
     Route: 058
     Dates: start: 20151016

REACTIONS (1)
  - Choking [Unknown]
